FAERS Safety Report 18867589 (Version 1)
Quarter: 2021Q1

REPORT INFORMATION
  Report Type: Spontaneous
  Country: US (occurrence: US)
  Receive Date: 20210209
  Receipt Date: 20210209
  Transmission Date: 20210420
  Serious: No
  Sender: FDA-Public Use
  Company Number: US-009507513-2101USA010785

PATIENT
  Age: 77 Year
  Sex: Male

DRUGS (2)
  1. PROVENTIL [Suspect]
     Active Substance: ALBUTEROL
     Dosage: INHALE TWO PUFFS BY MOUTH EVERY 4 HOURS WHEN NEEDED
     Dates: start: 20210118
  2. PROVENTIL [Suspect]
     Active Substance: ALBUTEROL
     Dosage: INHALE TWO PUFFS BY MOUTH EVERY 4 HOURS WHEN NEEDED
     Dates: start: 20210120

REACTIONS (3)
  - Device malfunction [Unknown]
  - Product dose omission issue [Unknown]
  - Poor quality device used [Unknown]

NARRATIVE: CASE EVENT DATE: 20210120
